FAERS Safety Report 7600459-2 (Version None)
Quarter: 2011Q3

REPORT INFORMATION
  Report Type: 
  Country: None (occurrence: None)
  Receive Date: 20110711
  Receipt Date: 20110628
  Transmission Date: 20111222
  Serious: Yes (Hospitalization)
  Sender: FDA-Public Use
  Company Number: PHHY2011NL53163

PATIENT
  Sex: Female

DRUGS (6)
  1. KEPPRA [Suspect]
     Dosage: 250 MG, BID
     Dates: start: 20110426
  2. FRISIUM [Concomitant]
     Dosage: 5 MG, QD
     Dates: start: 20090101
  3. CARBAMAZEPINE [Interacting]
     Dosage: UNK
     Dates: start: 20110609
  4. OMEPRAZOLE [Interacting]
     Dosage: 40 MG, QD
  5. DEPO-PROVERA [Concomitant]
     Dosage: 1 ML, Q3MO
     Dates: start: 20090101
  6. CARBAMAZEPINE [Interacting]
     Dosage: 1000 MG, UNK

REACTIONS (4)
  - DRUG INTERACTION [None]
  - AGGRESSION [None]
  - TOXICITY TO VARIOUS AGENTS [None]
  - AMNESIA [None]
